FAERS Safety Report 24982781 (Version 5)
Quarter: 2025Q1

REPORT INFORMATION
  Report Type: Report from Study
  Country: DE (occurrence: DE)
  Receive Date: 20250218
  Receipt Date: 20250317
  Transmission Date: 20250408
  Serious: Yes (Life-Threatening, Hospitalization)
  Sender: EISAI
  Company Number: DE-Eisai-EC-2025-184263

PATIENT
  Age: 61 Year
  Sex: Male
  Weight: 60.4 kg

DRUGS (3)
  1. LENVATINIB [Suspect]
     Active Substance: LENVATINIB
     Indication: Squamous cell carcinoma of head and neck
     Dates: start: 20241030, end: 20250107
  2. PEMBROLIZUMAB [Suspect]
     Active Substance: PEMBROLIZUMAB
     Indication: Squamous cell carcinoma of head and neck
     Dates: start: 20241009, end: 20250102
  3. CISPLATIN [Concomitant]
     Active Substance: CISPLATIN
     Dates: start: 20240813, end: 20240929

REACTIONS (2)
  - Tumour haemorrhage [Recovered/Resolved]
  - Gastric perforation [Recovered/Resolved]

NARRATIVE: CASE EVENT DATE: 20250208
